FAERS Safety Report 20801473 (Version 1)
Quarter: 2022Q2

REPORT INFORMATION
  Report Type: Spontaneous
  Country: US (occurrence: None)
  Receive Date: 20220506
  Receipt Date: 20220506
  Transmission Date: 20220720
  Serious: Yes (unspecified)
  Sender: FDA-Public Use
  Company Number: None

PATIENT
  Age: 35 Year
  Sex: Male
  Weight: 81.65 kg

DRUGS (1)
  1. BEBTELOVIMAB [Suspect]
     Active Substance: BEBTELOVIMAB
     Indication: Coronavirus infection
     Dosage: FREQUENCY : ONCE;?
     Route: 042
     Dates: start: 20220504, end: 20220504

REACTIONS (10)
  - Chest discomfort [None]
  - Dyspepsia [None]
  - Dizziness [None]
  - Dizziness [None]
  - Swelling face [None]
  - Heart rate decreased [None]
  - Cough [None]
  - Cold sweat [None]
  - Fatigue [None]
  - Throat irritation [None]

NARRATIVE: CASE EVENT DATE: 20220504
